FAERS Safety Report 16744992 (Version 2)
Quarter: 2019Q4

REPORT INFORMATION
  Report Type: Report from Study
  Country: CA (occurrence: CA)
  Receive Date: 20190827
  Receipt Date: 20191227
  Transmission Date: 20200122
  Serious: Yes (Other)
  Sender: FDA-Public Use
  Company Number: CA-JNJFOC-20190825759

PATIENT
  Sex: Female

DRUGS (1)
  1. REMICADE [Suspect]
     Active Substance: INFLIXIMAB
     Indication: CROHN^S DISEASE
     Route: 042
     Dates: start: 20170307, end: 20191216

REACTIONS (3)
  - Neoplasm malignant [Unknown]
  - Oropharyngeal pain [Unknown]
  - Cyst [Unknown]

NARRATIVE: CASE EVENT DATE: 2019
